FAERS Safety Report 4297148-1 (Version None)
Quarter: 2004Q1

REPORT INFORMATION
  Report Type: 
  Country: None (occurrence: None)
  Receive Date: 20040126
  Receipt Date: 20030904
  Transmission Date: 20041129
  Serious: No
  Sender: FDA-Public Use
  Company Number: USA030946232

PATIENT
  Age: 13 Year
  Sex: Male
  Weight: 34 kg

DRUGS (2)
  1. STRATTERA [Suspect]
     Dosage: 50 MG/DAY
     Dates: start: 20030601
  2. CONCERTA (METHYLPHENIDATE HYDRPCHLORIDE) [Concomitant]

REACTIONS (3)
  - GASTROINTESTINAL DISORDER [None]
  - PRESCRIBED OVERDOSE [None]
  - VOMITING [None]
